FAERS Safety Report 4977631-3 (Version None)
Quarter: 2006Q2

REPORT INFORMATION
  Report Type: 
  Country: None (occurrence: None)
  Receive Date: 20060420
  Receipt Date: 20050804
  Transmission Date: 20061013
  Serious: No
  Sender: FDA-Public Use
  Company Number: US-GLAXOSMITHKLINE-A0568967A

PATIENT
  Age: 18 Year
  Sex: Male

DRUGS (1)
  1. LITHIUM CARBONATE [Suspect]
     Route: 048
     Dates: start: 19950101

REACTIONS (2)
  - ACNE CYSTIC [None]
  - BLOOD URIC ACID INCREASED [None]
